FAERS Safety Report 6105486-2 (Version None)
Quarter: 2009Q1

REPORT INFORMATION
  Report Type: 
  Country: None (occurrence: None)
  Receive Date: 20090306
  Receipt Date: 20090227
  Transmission Date: 20090719
  Serious: Yes (Hospitalization)
  Sender: FDA-Public Use
  Company Number: A0771637A

PATIENT
  Age: 79 Year
  Sex: Female
  Weight: 81.8 kg

DRUGS (10)
  1. AVANDIA [Suspect]
     Indication: DIABETES MELLITUS
     Dosage: 4MG PER DAY
     Route: 048
     Dates: start: 20060301, end: 20070201
  2. AVANDARYL [Suspect]
     Indication: DIABETES MELLITUS
     Route: 048
     Dates: start: 20070201, end: 20071101
  3. GLYSET [Concomitant]
  4. INSULIN [Concomitant]
  5. GLUCOTROL [Concomitant]
  6. LASIX [Concomitant]
     Dates: start: 19980401
  7. NITROGLYCERIN [Concomitant]
     Dates: start: 19980401
  8. ASPIRIN [Concomitant]
  9. ALBUTEROL [Concomitant]
  10. AXID [Concomitant]

REACTIONS (2)
  - CARDIAC DISORDER [None]
  - MYOCARDIAL INFARCTION [None]
